FAERS Safety Report 10096608 (Version 1)
Quarter: 2014Q2

REPORT INFORMATION
  Report Type: Report from Study
  Country: US (occurrence: US)
  Receive Date: 20140422
  Receipt Date: 20140422
  Transmission Date: 20141212
  Serious: Yes (Other)
  Sender: FDA-Public Use
  Company Number: US-PURDUE-USA-2014-0113170

PATIENT
  Age: 52 Year
  Sex: Male

DRUGS (3)
  1. OXY CR TAB [Suspect]
     Indication: INTERVERTEBRAL DISC DEGENERATION
     Dosage: UNK
     Route: 048
     Dates: start: 20100304
  2. OXY CR TAB [Suspect]
     Dosage: 80 MG, Q8H
     Route: 048
     Dates: start: 20140329
  3. OXY CR TAB [Suspect]
     Dosage: 40 MG, Q8H
     Route: 048
     Dates: start: 20140329

REACTIONS (2)
  - Intervertebral disc degeneration [Not Recovered/Not Resolved]
  - Inadequate analgesia [Not Recovered/Not Resolved]
